FAERS Safety Report 12847982 (Version 1)
Quarter: 2016Q4

REPORT INFORMATION
  Report Type: Spontaneous
  Country: US (occurrence: US)
  Receive Date: 20161014
  Receipt Date: 20161014
  Transmission Date: 20170207
  Serious: No
  Sender: FDA-Public Use
  Company Number: US-JNJFOC-20160921912

PATIENT
  Age: 10 Month
  Sex: Female
  Weight: 9.07 kg

DRUGS (1)
  1. CHILDRENS TYLENOL [Suspect]
     Active Substance: ACETAMINOPHEN
     Indication: TEETHING
     Dosage: 2.5ML-3.75ML, EVERY 4 HOURS
     Route: 048
     Dates: start: 20160918

REACTIONS (2)
  - Drug administration error [Unknown]
  - Vomiting [Not Recovered/Not Resolved]

NARRATIVE: CASE EVENT DATE: 20160918
